FAERS Safety Report 5606743-6 (Version None)
Quarter: 2008Q1

REPORT INFORMATION
  Report Type: 
  Country: None (occurrence: None)
  Receive Date: 20080129
  Receipt Date: 20080124
  Transmission Date: 20080703
  Serious: Yes (Hospitalization, Disabling, Other)
  Sender: FDA-Public Use
  Company Number: DE-PFIZER INC-2005091354

PATIENT
  Sex: Female
  Weight: 60 kg

DRUGS (9)
  1. CABASERIL [Suspect]
     Indication: PARKINSON'S DISEASE
     Dosage: DAILY DOSE:6MG-FREQ:DAILY
     Route: 048
     Dates: start: 20031101, end: 20050613
  2. SELEGILINE HCL [Concomitant]
     Dosage: TEXT:UNKNOWN
     Route: 048
  3. TEBONIN [Concomitant]
     Dosage: TEXT:UNKNOWN
     Route: 048
  4. NEUROPLANT [Concomitant]
     Dosage: TEXT:UNKNOWN
     Route: 048
  5. BISOPROLOL FUMARATE [Concomitant]
     Dosage: TEXT:UNKNOWN
     Route: 065
  6. GINGIUM [Concomitant]
     Dosage: TEXT:UNKNOWN
     Route: 065
  7. FUROSEMIDE [Concomitant]
     Dosage: TEXT:UNKNOWN
     Route: 065
  8. HEPARIN [Concomitant]
     Dosage: TEXT:UNKNOWN
     Route: 065
  9. SYMBICORT [Concomitant]
     Route: 055
     Dates: start: 20050101

REACTIONS (6)
  - AORTIC VALVE INCOMPETENCE [None]
  - ARTERIOSCLEROSIS CORONARY ARTERY [None]
  - DYSPNOEA [None]
  - MITRAL VALVE DISEASE [None]
  - PLEURAL EFFUSION [None]
  - TRICUSPID VALVE DISEASE [None]
